FAERS Safety Report 13304898 (Version 1)
Quarter: 2017Q1

REPORT INFORMATION
  Report Type: Spontaneous
  Country: US (occurrence: US)
  Receive Date: 20170307
  Receipt Date: 20170307
  Transmission Date: 20170428
  Serious: Yes (Disabling)
  Sender: FDA-Public Use
  Company Number: None

PATIENT
  Age: 45 Year
  Sex: Female
  Weight: 56.25 kg

DRUGS (1)
  1. CIPROFLOXACIN. [Suspect]
     Active Substance: CIPROFLOXACIN
     Indication: URINARY TRACT INFECTION
     Dosage: ?          QUANTITY:1 TABLET(S);?
     Route: 048
     Dates: start: 20010109, end: 20010119

REACTIONS (6)
  - Nerve injury [None]
  - Tachycardia [None]
  - Tremor [None]
  - Tendonitis [None]
  - Panic attack [None]
  - Paraesthesia [None]

NARRATIVE: CASE EVENT DATE: 20010110
